FAERS Safety Report 22208707 (Version 2)
Quarter: 2024Q1

REPORT INFORMATION
  Report Type: Report from Study
  Country: US (occurrence: US)
  Receive Date: 20230413
  Receipt Date: 20240202
  Transmission Date: 20240410
  Serious: No
  Sender: FDA-Public Use
  Company Number: US-TAKEDA-2023TUS036222

PATIENT
  Sex: Male
  Weight: 61 kg

DRUGS (6)
  1. VONICOG ALFA [Suspect]
     Active Substance: VONICOG ALFA
     Indication: Von Willebrand^s disease
     Dosage: 3000 INTERNATIONAL UNIT, 1/WEEK
     Route: 065
  2. VONICOG ALFA [Suspect]
     Active Substance: VONICOG ALFA
     Dosage: 50 INTERNATIONAL UNIT/KILOGRAM, 1/WEEK
     Route: 065
  3. ALBUTEROL [Concomitant]
     Active Substance: ALBUTEROL
     Dosage: UNK
     Route: 065
  4. TYLENOL [Concomitant]
     Active Substance: ACETAMINOPHEN
     Dosage: UNK
     Route: 065
  5. ZYRTEC [Concomitant]
     Active Substance: CETIRIZINE HYDROCHLORIDE
     Dosage: UNK
     Route: 065
  6. EFFEXOR [Concomitant]
     Active Substance: VENLAFAXINE HYDROCHLORIDE
     Dosage: UNK
     Route: 065

REACTIONS (3)
  - Oropharyngeal pain [Unknown]
  - Product physical issue [Unknown]
  - Product preparation issue [Unknown]
